FAERS Safety Report 18713196 (Version 1)
Quarter: 2021Q1

REPORT INFORMATION
  Report Type: Spontaneous
  Country: IT (occurrence: IT)
  Receive Date: 20210107
  Receipt Date: 20210107
  Transmission Date: 20210419
  Serious: Yes (Death)
  Sender: FDA-Public Use
  Company Number: IT-MALLINCKRODT-T202006001

PATIENT
  Age: 62 Year
  Sex: Male

DRUGS (2)
  1. UVADEX [Suspect]
     Active Substance: METHOXSALEN
     Indication: CUTANEOUS T-CELL LYMPHOMA
     Dosage: UNK. 2 TIMES PER WEEK (EXTRACORPOREAL)
     Route: 050
  2. ACITRETIN. [Suspect]
     Active Substance: ACITRETIN
     Indication: CUTANEOUS T-CELL LYMPHOMA
     Dosage: 10 OR 20 MG QD
     Route: 065

REACTIONS (3)
  - Cutaneous T-cell lymphoma [Fatal]
  - Therapy non-responder [Unknown]
  - Disease progression [Fatal]
